FAERS Safety Report 9412527 (Version 1)
Quarter: 2013Q3

REPORT INFORMATION
  Report Type: Spontaneous
  Country: US (occurrence: None)
  Receive Date: 20130715
  Receipt Date: 20130715
  Transmission Date: 20140515
  Serious: Yes (Other)
  Sender: FDA-Public Use
  Company Number: 7215171

PATIENT
  Age: 49 Year
  Sex: Female

DRUGS (3)
  1. EUTHYROX [Suspect]
     Indication: POST PROCEDURAL HYPOTHYROIDISM
     Dosage: 2 TABLETS EUTHY
     Dates: start: 20130529
  2. DOXEPIN (DOXEPIN) (DOXEPIN) [Suspect]
     Indication: PRODUCT USED FOR UNKNOWN INDICATION
     Route: 048
  3. ALPRAZOLAN (ALPRAZOLAM) (ALPRAZOLAM) [Concomitant]

REACTIONS (14)
  - Intracranial pressure increased [None]
  - VIIth nerve paralysis [None]
  - Paraesthesia [None]
  - Nervousness [None]
  - Head discomfort [None]
  - Anxiety [None]
  - Lymphadenopathy [None]
  - Nausea [None]
  - Feeling cold [None]
  - Feeling hot [None]
  - Lymph node pain [None]
  - Drug interaction [None]
  - Pharyngeal oedema [None]
  - Oropharyngeal pain [None]
